FAERS Safety Report 7237219-0 (Version None)
Quarter: 2011Q1

REPORT INFORMATION
  Report Type: 
  Country: None (occurrence: None)
  Receive Date: 20110121
  Receipt Date: 20110106
  Transmission Date: 20110831
  Serious: Yes (Death)
  Sender: FDA-Public Use
  Company Number: US-PFIZER INC-2011011601

PATIENT
  Sex: Female

DRUGS (3)
  1. SERTRALINE HYDROCHLORIDE [Suspect]
     Route: 048
  2. CLONAZEPAM [Suspect]
     Route: 048
  3. OXYCODONE [Suspect]
     Route: 048

REACTIONS (1)
  - INTENTIONAL DRUG MISUSE [None]
